FAERS Safety Report 18410396 (Version 3)
Quarter: 2021Q1

REPORT INFORMATION
  Report Type: Spontaneous
  Country: GB (occurrence: GB)
  Receive Date: 20201021
  Receipt Date: 20210324
  Transmission Date: 20210419
  Serious: Yes (Other)
  Sender: FDA-Public Use
  Company Number: GB-PFIZER INC-2020404088

PATIENT
  Sex: Male

DRUGS (26)
  1. L?ASPARTIC ACID [Suspect]
     Active Substance: ASPARTIC ACID
     Dosage: UNK
  2. QUETIAPINE. [Suspect]
     Active Substance: QUETIAPINE
     Dosage: UNK
  3. DESMODIUM ADSCENDENS [Suspect]
     Active Substance: HERBALS
     Dosage: UNK
  4. SULFAMETHOXAZOLE [Suspect]
     Active Substance: SULFAMETHOXAZOLE
     Dosage: UNK
  5. EPSOM SALTS [Suspect]
     Active Substance: MAGNESIUM SULFATE HEPTAHYDRATE
     Dosage: UNK
  6. ORNITHINE [Suspect]
     Active Substance: ORNITHINE
     Dosage: UNK
  7. RIFAMPICIN [Suspect]
     Active Substance: RIFAMPIN
     Dosage: UNK
  8. PREGABALIN. [Suspect]
     Active Substance: PREGABALIN
     Dosage: UNK
  9. FLAGYL [Suspect]
     Active Substance: METRONIDAZOLE\METRONIDAZOLE HYDROCHLORIDE
     Dosage: UNK
  10. MINOCYCLINE [Suspect]
     Active Substance: MINOCYCLINE HYDROCHLORIDE
     Dosage: UNK
  11. L?THEANINE [Suspect]
     Active Substance: DIETARY SUPPLEMENT
     Dosage: UNK
  12. BACTERIOSTATIC SODIUM CHLORIDE [Suspect]
     Active Substance: SODIUM CHLORIDE
     Dosage: UNK
  13. ZINC. [Suspect]
     Active Substance: ZINC
     Dosage: UNK
  14. MAGNESIUM [Suspect]
     Active Substance: MAGNESIUM
     Dosage: UNK
  15. GLUTATHIONE [Suspect]
     Active Substance: GLUTATHIONE
     Dosage: UNK
  16. TRIMETHOPRIM. [Suspect]
     Active Substance: TRIMETHOPRIM
     Dosage: UNK
  17. CURCUMIN [Suspect]
     Active Substance: CURCUMIN
     Dosage: UNK
  18. ASCORBIC ACID. [Suspect]
     Active Substance: ASCORBIC ACID
     Dosage: UNK
  19. PROTEINS NOS [Suspect]
     Active Substance: PROTEIN
     Dosage: UNK
  20. LAMOTRIGINE. [Suspect]
     Active Substance: LAMOTRIGINE
     Dosage: UNK
  21. AMOXICILLIN. [Suspect]
     Active Substance: AMOXICILLIN
     Dosage: UNK
  22. CANNABIDIOL [Suspect]
     Active Substance: CANNABIDIOL
     Dosage: UNK
  23. MILK THISTLE [Suspect]
     Active Substance: DIETARY SUPPLEMENT\HERBALS\MILK THISTLE
     Dosage: UNK
  24. PIMPINELLA ANISUM [Suspect]
     Active Substance: PIMPINELLA ANISUM WHOLE
     Dosage: UNK
  25. SACCHAROMYCES BOULARDII [Suspect]
     Active Substance: SACCHAROMYCES CEREVISIAE
     Dosage: UNK
  26. GAMMA?AMINOBUTYRIC ACID [Suspect]
     Active Substance: .GAMMA.-AMINOBUTYRIC ACID
     Dosage: UNK

REACTIONS (2)
  - Seizure [Unknown]
  - Metal poisoning [Unknown]

NARRATIVE: CASE EVENT DATE: 202006
